FAERS Safety Report 9925311 (Version 1)
Quarter: 2014Q1

REPORT INFORMATION
  Report Type: Spontaneous
  Country: BR (occurrence: BR)
  Receive Date: 20140226
  Receipt Date: 20140226
  Transmission Date: 20141002
  Serious: Yes (Other)
  Sender: FDA-Public Use
  Company Number: BR-009507513-1402BRA012062

PATIENT
  Sex: Female
  Weight: 69 kg

DRUGS (7)
  1. LOSARTAN POTASSIUM [Suspect]
     Indication: HYPERTENSION
     Dosage: UNK
     Route: 048
  2. SIMVASTATIN [Suspect]
     Dosage: UNK
     Route: 048
  3. ATENOLOL [Concomitant]
     Indication: HYPERTENSION
  4. OMEPRAZOLE [Concomitant]
  5. CALCIUM (UNSPECIFIED) [Concomitant]
  6. VITAMIN D (UNSPECIFIED) [Concomitant]
  7. OLCADIL [Concomitant]

REACTIONS (1)
  - Breast cancer female [Not Recovered/Not Resolved]
